FAERS Safety Report 11867467 (Version 2)
Quarter: 2016Q1

REPORT INFORMATION
  Report Type: Report from Study
  Country: US (occurrence: US)
  Receive Date: 20151224
  Receipt Date: 20160128
  Transmission Date: 20160526
  Serious: No
  Sender: FDA-Public Use
  Company Number: GXBR2015US002792

PATIENT
  Sex: Female
  Weight: 74.38 kg

DRUGS (3)
  1. ALLERGY MEDICATION [Concomitant]
     Active Substance: DIPHENHYDRAMINE HYDROCHLORIDE
     Indication: HYPERSENSITIVITY
     Dosage: UNK DF, UNK
     Route: 048
  2. GLATOPA [Suspect]
     Active Substance: GLATIRAMER ACETATE
     Dosage: 20 MG, QD
     Route: 058
     Dates: start: 20151110
  3. GLATOPA [Suspect]
     Active Substance: GLATIRAMER ACETATE
     Indication: MULTIPLE SCLEROSIS
     Dosage: 20 MG, QD
     Route: 058
     Dates: start: 20151202

REACTIONS (3)
  - Injection site mass [Not Recovered/Not Resolved]
  - Injection site erythema [Not Recovered/Not Resolved]
  - Injection site pruritus [Not Recovered/Not Resolved]
